FAERS Safety Report 10007439 (Version 2)
Quarter: 2014Q1

REPORT INFORMATION
  Report Type: Spontaneous
  Country: US (occurrence: US)
  Receive Date: 20140313
  Receipt Date: 20140313
  Transmission Date: 20141002
  Serious: Yes (Disabling)
  Sender: FDA-Public Use
  Company Number: US-GE HEALTHCARE MEDICAL DIAGNOSTICS-OSCN-PR-1003S-0058

PATIENT
  Age: 30 Year
  Sex: Female
  Weight: 59.8 kg

DRUGS (5)
  1. OMNISCAN [Suspect]
     Indication: HYPERTENSION
     Route: 042
     Dates: start: 20030110, end: 20030110
  2. OMNISCAN [Suspect]
     Indication: HEADACHE
     Route: 042
     Dates: start: 20030922, end: 20030922
  3. OMNISCAN [Suspect]
     Indication: PAIN IN EXTREMITY
  4. OMNISCAN [Suspect]
     Indication: MUSCULAR WEAKNESS
  5. MAGNEVIST [Suspect]
     Indication: HYDROCEPHALUS
     Route: 065
     Dates: start: 20070118, end: 20070118

REACTIONS (1)
  - Nephrogenic systemic fibrosis [Not Recovered/Not Resolved]
